FAERS Safety Report 9315419 (Version 5)
Quarter: 2014Q1

REPORT INFORMATION
  Report Type: Spontaneous
  Country: GB (occurrence: GB)
  Receive Date: 20130529
  Receipt Date: 20140207
  Transmission Date: 20141002
  Serious: Yes (Hospitalization)
  Sender: FDA-Public Use
  Company Number: GB-ACTAVIS-2013-09074

PATIENT
  Age: 58 Year
  Sex: Male
  Weight: 94 kg

DRUGS (5)
  1. LANSOPRAZOLE (UNKNOWN) [Suspect]
     Indication: GASTROOESOPHAGEAL REFLUX DISEASE
     Dosage: 15 MG, DAILY
     Route: 048
  2. PANADEINE /00116401/ [Suspect]
     Indication: PSORIATIC ARTHROPATHY
     Dosage: 240 MG/4 G
     Route: 048
  3. GOLIMUMAB [Suspect]
     Indication: PSORIATIC ARTHROPATHY
     Dosage: 50 MG, ONCE A MONTH
     Route: 058
     Dates: start: 201207
  4. GOLIMUMAB [Suspect]
     Dosage: 50 MG, UNKNOWN
     Route: 058
     Dates: start: 20120824
  5. ARCOXIA [Suspect]
     Indication: PSORIATIC ARTHROPATHY
     Dosage: 90 MG, DAILY TABLETS
     Route: 048

REACTIONS (1)
  - Allodynia [Recovering/Resolving]
